FAERS Safety Report 11534449 (Version 3)
Quarter: 2015Q4

REPORT INFORMATION
  Report Type: Report from Study
  Country: CA (occurrence: CA)
  Receive Date: 20150922
  Receipt Date: 20151130
  Transmission Date: 20160304
  Serious: Yes (Death, Hospitalization)
  Sender: FDA-Public Use
  Company Number: PHHY2015CA090087

PATIENT
  Age: 64 Year
  Sex: Female

DRUGS (1)
  1. SANDOSTATIN LAR DEPOT [Suspect]
     Active Substance: OCTREOTIDE ACETATE
     Indication: NEUROENDOCRINE CARCINOMA OF THE SKIN
     Dosage: 30 MG, QMO
     Route: 030
     Dates: start: 20150714, end: 20151015

REACTIONS (5)
  - Fall [Unknown]
  - Weight bearing difficulty [Unknown]
  - Malaise [Unknown]
  - Neuroendocrine carcinoma of the skin [Fatal]
  - Hip fracture [Unknown]

NARRATIVE: CASE EVENT DATE: 20150723
